FAERS Safety Report 12718554 (Version 6)
Quarter: 2016Q4

REPORT INFORMATION
  Report Type: Spontaneous
  Country: BR (occurrence: BR)
  Receive Date: 20160906
  Receipt Date: 20161118
  Transmission Date: 20170207
  Serious: Yes (Other)
  Sender: FDA-Public Use
  Company Number: BR-REGENERON PHARMACEUTICALS, INC.-2016-21342

PATIENT

DRUGS (4)
  1. EYLEA [Suspect]
     Active Substance: AFLIBERCEPT
     Indication: AGE-RELATED MACULAR DEGENERATION
     Dosage: RIGHT EYE
     Route: 031
  2. VIGAMOX [Concomitant]
     Active Substance: MOXIFLOXACIN HYDROCHLORIDE
     Indication: ANTIBIOTIC PROPHYLAXIS
  3. POVIDONE [Concomitant]
     Active Substance: POVIDONE
     Indication: PROPHYLAXIS
  4. EYLEA [Interacting]
     Active Substance: AFLIBERCEPT
     Dosage: LAST DOSE PRIOR TO THE EVENT (TOTAL OF 3 INJECTIONS)
     Route: 031
     Dates: start: 20160819, end: 20160819

REACTIONS (5)
  - Device interaction [Unknown]
  - Multiple use of single-use product [Unknown]
  - Syringe issue [Unknown]
  - Vitritis [Unknown]
  - Eye operation complication [Unknown]

NARRATIVE: CASE EVENT DATE: 20160822
